FAERS Safety Report 8924417 (Version 1)
Quarter: 2012Q4

REPORT INFORMATION
  Report Type: 
  Country: IT (occurrence: IT)
  Receive Date: 20121126
  Receipt Date: 20121126
  Transmission Date: 20130627
  Serious: Yes (Hospitalization)
  Sender: FDA-Public Use
  Company Number: IT-CELGENEUS-083-50794-12111957

PATIENT
  Age: 81 Year
  Sex: Male

DRUGS (1)
  1. VIDAZA [Suspect]
     Indication: ACUTE MYELOID LEUKEMIA
     Route: 058
     Dates: start: 20120724, end: 20120801

REACTIONS (4)
  - Hypoxia [Recovered/Resolved]
  - Lung infiltration [Recovered/Resolved]
  - Dyspnoea [Recovered/Resolved]
  - Pyrexia [Recovered/Resolved]
